FAERS Safety Report 20168387 (Version 1)
Quarter: 2021Q4

REPORT INFORMATION
  Report Type: Spontaneous
  Country: US (occurrence: US)
  Receive Date: 20211210
  Receipt Date: 20211210
  Transmission Date: 20220303
  Serious: No
  Sender: FDA-Public Use
  Company Number: US-JNJFOC-20211164501

PATIENT
  Sex: Female

DRUGS (1)
  1. WOMENS ROGAINE UNSCENTED [Suspect]
     Active Substance: MINOXIDIL
     Indication: Alopecia
     Dosage: FOLLOWED THE INSTRUCTION
     Route: 061
     Dates: start: 20211128

REACTIONS (2)
  - Application site pruritus [Unknown]
  - Application site pain [Unknown]

NARRATIVE: CASE EVENT DATE: 20211128
